FAERS Safety Report 23160290 (Version 1)
Quarter: 2023Q4

REPORT INFORMATION
  Report Type: Spontaneous
  Country: US (occurrence: None)
  Receive Date: 20231107
  Receipt Date: 20231107
  Transmission Date: 20240110
  Serious: Yes (Hospitalization)
  Sender: FDA-Public Use
  Company Number: None

PATIENT
  Age: 22 Month
  Sex: Female

DRUGS (3)
  1. SILDENAFIL [Suspect]
     Active Substance: SILDENAFIL
     Indication: Pulmonary arterial hypertension
     Dosage: FREQUENCY : 3 TIMES A DAY;?OTHER ROUTE : GASTRIC TUBE;?
     Route: 050
     Dates: start: 202304
  2. UPTRAVI [Concomitant]
     Active Substance: SELEXIPAG
  3. TRACLEER [Concomitant]
     Active Substance: BOSENTAN

REACTIONS (1)
  - Ear infection [None]

NARRATIVE: CASE EVENT DATE: 20231028
